FAERS Safety Report 8264942-1 (Version None)
Quarter: 2012Q2

REPORT INFORMATION
  Report Type: 
  Country: None (occurrence: None)
  Receive Date: 20120403
  Receipt Date: 20120320
  Transmission Date: 20120825
  Serious: Yes (Other)
  Sender: FDA-Public Use
  Company Number: 2012AP000881

PATIENT
  Age: 69 Year
  Sex: Male

DRUGS (1)
  1. OLANZAPINE [Suspect]
     Indication: DELUSIONAL DISORDER, UNSPECIFIED TYPE

REACTIONS (2)
  - ATRIOVENTRICULAR BLOCK COMPLETE [None]
  - HYPOTHERMIA [None]
